FAERS Safety Report 10504574 (Version 1)
Quarter: 2014Q4

REPORT INFORMATION
  Report Type: Spontaneous
  Country: US (occurrence: US)
  Receive Date: 20141008
  Receipt Date: 20141008
  Transmission Date: 20150528
  Serious: Yes (Other)
  Sender: FDA-Public Use
  Company Number: US-ACTAVIS-2014-21343

PATIENT
  Sex: Female

DRUGS (1)
  1. OXAZEPAM (AELLC) [Suspect]
     Active Substance: OXAZEPAM
     Indication: ANXIETY
     Dosage: 2 DF, BID
     Route: 065
     Dates: start: 201408

REACTIONS (11)
  - Insomnia [Unknown]
  - Drug ineffective [Unknown]
  - Product substitution issue [None]
  - Drug withdrawal syndrome [Unknown]
  - Malaise [Unknown]
  - Mental disorder [Unknown]
  - Drug dependence [Unknown]
  - Dizziness [Unknown]
  - Hyperhidrosis [Unknown]
  - Inappropriate schedule of drug administration [Unknown]
  - Pruritus [Unknown]

NARRATIVE: CASE EVENT DATE: 201408
